FAERS Safety Report 14800226 (Version 1)
Quarter: 2018Q2

REPORT INFORMATION
  Report Type: Spontaneous
  Country: US (occurrence: US)
  Receive Date: 20180424
  Receipt Date: 20180424
  Transmission Date: 20180711
  Serious: Yes (Other)
  Sender: FDA-Public Use
  Company Number: US-APOTEX-2018AP010423

PATIENT
  Age: 33 Year
  Sex: Female
  Weight: 57 kg

DRUGS (20)
  1. GABAPENTIN. [Concomitant]
     Active Substance: GABAPENTIN
     Indication: PRODUCT USED FOR UNKNOWN INDICATION
     Dosage: 1200 MG, BID
     Route: 048
  2. PROPRANOLOL [Concomitant]
     Active Substance: PROPRANOLOL HYDROCHLORIDE
     Indication: PRODUCT USED FOR UNKNOWN INDICATION
     Dosage: 40 MG, AS NEEDED
     Route: 048
     Dates: end: 20170605
  3. NORTHERA [Suspect]
     Active Substance: DROXIDOPA
     Indication: AUTONOMIC DYSREFLEXIA
     Dosage: 300 MG, AM
     Route: 048
     Dates: start: 20170323
  4. AMITRIPTYLIN [Concomitant]
     Active Substance: AMITRIPTYLINE
     Indication: PRODUCT USED FOR UNKNOWN INDICATION
     Dosage: UNK
     Route: 048
  5. FIORINAL [Concomitant]
     Active Substance: ASPIRIN\BUTALBITAL\CAFFEINE
     Indication: PRODUCT USED FOR UNKNOWN INDICATION
     Dosage: 50 MG-325 MG-40 MG, NOT TO EXCEED 6 IN 24 HOURS (1 DF IN 4 HRS)
     Route: 048
  6. NORTHERA [Suspect]
     Active Substance: DROXIDOPA
     Dosage: 600 MG, AM
     Route: 048
     Dates: start: 20170605
  7. PROPRANOLOL [Concomitant]
     Active Substance: PROPRANOLOL HYDROCHLORIDE
     Dosage: 80 MG, BID
     Route: 048
     Dates: end: 20170605
  8. NORTHERA [Suspect]
     Active Substance: DROXIDOPA
     Dosage: SCHEDULE A AND TITRATING
     Route: 065
     Dates: start: 20170417
  9. NORTHERA [Suspect]
     Active Substance: DROXIDOPA
     Dosage: 400 MG, TID
     Route: 065
     Dates: start: 201704
  10. NORTHERA [Suspect]
     Active Substance: DROXIDOPA
     Dosage: 600 MG, TID
     Route: 065
     Dates: start: 201704
  11. MIDODRINE [Suspect]
     Active Substance: MIDODRINE
     Indication: AUTONOMIC DYSREFLEXIA
     Dosage: UNK
     Route: 065
  12. NORTHERA [Suspect]
     Active Substance: DROXIDOPA
     Dosage: 300 MG, LATE AFTERNOON 3 HRS BEFORE HS
     Route: 048
  13. IBUPROFEN. [Concomitant]
     Active Substance: IBUPROFEN
     Indication: PRODUCT USED FOR UNKNOWN INDICATION
     Dosage: 800 MG, PRN WITH FOOD
     Route: 048
  14. NORTHERA [Suspect]
     Active Substance: DROXIDOPA
     Dosage: 300 MG, NOON
     Route: 048
     Dates: start: 20170323
  15. PROPRANOLOL [Concomitant]
     Active Substance: PROPRANOLOL HYDROCHLORIDE
     Dosage: 80 MG, QD
     Route: 048
  16. NORTHERA [Suspect]
     Active Substance: DROXIDOPA
     Dosage: 300 MG, TID
     Route: 065
  17. NORTHERA [Suspect]
     Active Substance: DROXIDOPA
     Dosage: 600 MG, NOON
     Route: 048
     Dates: start: 20170605
  18. FLORINEF ACETATE [Suspect]
     Active Substance: FLUDROCORTISONE ACETATE
     Indication: AUTONOMIC DYSREFLEXIA
     Dosage: 1 DF, 1 DAY
     Route: 065
     Dates: end: 20170605
  19. MAXALT [Concomitant]
     Active Substance: RIZATRIPTAN BENZOATE
     Indication: PRODUCT USED FOR UNKNOWN INDICATION
     Dosage: 10 MG, (1 IN 2 HOURS) DONT EXCEED 30 MG IN 24 HOURS
     Route: 048
  20. NORTHERA [Suspect]
     Active Substance: DROXIDOPA
     Dosage: 300 MG,LATE AFTERNOON 3 HRS BEFORE HS
     Route: 048
     Dates: start: 20170323

REACTIONS (12)
  - Migraine [Unknown]
  - Diarrhoea [Unknown]
  - Vomiting [Unknown]
  - Hypoaesthesia [Unknown]
  - Hyperhidrosis [Unknown]
  - Paraesthesia [Unknown]
  - Dizziness [Unknown]
  - Headache [Unknown]
  - Hypotension [Unknown]
  - Syncope [Recovering/Resolving]
  - Nausea [Unknown]
  - Pain in extremity [Unknown]

NARRATIVE: CASE EVENT DATE: 20170420
